FAERS Safety Report 18440268 (Version 6)
Quarter: 2020Q4

REPORT INFORMATION
  Report Type: Spontaneous
  Country: DE (occurrence: DE)
  Receive Date: 20201029
  Receipt Date: 20201110
  Transmission Date: 20210114
  Serious: Yes (Death, Hospitalization)
  Sender: FDA-Public Use
  Company Number: DE-CELGENEUS-DEU-20201007072

PATIENT
  Age: 41 Year
  Sex: Female

DRUGS (9)
  1. LUSPATERCEPT. [Suspect]
     Active Substance: LUSPATERCEPT
     Indication: THALASSAEMIA BETA
     Dosage: 1 MG/KG BODY WEIGHT
     Route: 058
     Dates: start: 20200828
  2. TALTZ [Concomitant]
     Active Substance: IXEKIZUMAB
     Indication: PSORIASIS
     Route: 065
  3. ERYTHROCYTE [Concomitant]
     Active Substance: HUMAN RED BLOOD CELL
     Indication: PRODUCT USED FOR UNKNOWN INDICATION
     Dosage: (UP TO NOW MOSTLY ANAMNESTIC 2 ERYTHROCYTE CONCENTRATIONS NECESSARY IN THIS INTERVAL)
     Route: 065
     Dates: start: 20200916
  4. LEVOTHYROXINE. [Concomitant]
     Active Substance: LEVOTHYROXINE
     Indication: HYPOTHYROIDISM
     Route: 065
  5. LUSPATERCEPT. [Suspect]
     Active Substance: LUSPATERCEPT
     Dosage: 1 MG/KG BODY WEIGHT
     Route: 058
     Dates: start: 20201007, end: 20201027
  6. EXJADE [Concomitant]
     Active Substance: DEFERASIROX
     Indication: CHELATION THERAPY
     Route: 065
  7. FERRIPROX [Concomitant]
     Active Substance: DEFERIPRONE
     Indication: CHELATION THERAPY
     Route: 065
  8. MINISISTON [Concomitant]
     Active Substance: ETHINYL ESTRADIOL\LEVONORGESTREL
     Indication: HORMONE REPLACEMENT THERAPY
     Route: 065
  9. LUSPATERCEPT. [Suspect]
     Active Substance: LUSPATERCEPT
     Dosage: 1 MG/KG BODY WEIGHT
     Route: 058
     Dates: start: 20200918

REACTIONS (3)
  - Pulmonary embolism [Fatal]
  - Right ventricular failure [Unknown]
  - Deep vein thrombosis [Unknown]

NARRATIVE: CASE EVENT DATE: 20201022
